FAERS Safety Report 4977537-X (Version None)
Quarter: 2006Q2

REPORT INFORMATION
  Report Type: 
  Country: None (occurrence: None)
  Receive Date: 20060420
  Receipt Date: 20060412
  Transmission Date: 20061013
  Serious: Yes (Hospitalization)
  Sender: FDA-Public Use
  Company Number: US-GILEAD-2006-0009445

PATIENT
  Sex: Male
  Weight: 97.61 kg

DRUGS (4)
  1. BLINDED EMTRICITABINE/TENOFOVIR DF [Suspect]
     Indication: HIV INFECTION
     Route: 048
     Dates: start: 20051107
  2. BLINDED ABACAVIR/LAMIVUDINE [Suspect]
     Indication: HIV INFECTION
     Route: 048
     Dates: start: 20051107
  3. ATAZANAVIR [Suspect]
     Indication: HIV INFECTION
     Route: 048
     Dates: start: 20051107
  4. RITONAVIR [Suspect]
     Indication: HIV INFECTION
     Route: 048
     Dates: start: 20051107

REACTIONS (3)
  - APPENDICITIS [None]
  - HEPATIC STEATOSIS [None]
  - SPLENOMEGALY [None]
